FAERS Safety Report 11164466 (Version 2)
Quarter: 2015Q2

REPORT INFORMATION
  Report Type: Spontaneous
  Country: BR (occurrence: BR)
  Receive Date: 20150604
  Receipt Date: 20150618
  Transmission Date: 20150821
  Serious: Yes (Other)
  Sender: FDA-Public Use
  Company Number: BR-ROCHE-1587794

PATIENT
  Sex: Male
  Weight: 101 kg

DRUGS (2)
  1. LUCENTIS [Suspect]
     Active Substance: RANIBIZUMAB
     Route: 050
     Dates: start: 201505
  2. LUCENTIS [Suspect]
     Active Substance: RANIBIZUMAB
     Indication: VITREOUS HAEMORRHAGE
     Route: 050
     Dates: start: 201501

REACTIONS (3)
  - Vitreous haemorrhage [Recovering/Resolving]
  - Influenza [Recovering/Resolving]
  - Product use issue [Unknown]
